FAERS Safety Report 13019262 (Version 1)
Quarter: 2016Q4

REPORT INFORMATION
  Report Type: Spontaneous
  Country: US (occurrence: US)
  Receive Date: 20161212
  Receipt Date: 20161212
  Transmission Date: 20170207
  Serious: No
  Sender: FDA-Public Use
  Company Number: US-ROCHE-1827545

PATIENT

DRUGS (7)
  1. LYRICA [Concomitant]
     Active Substance: PREGABALIN
     Indication: SEIZURE
     Route: 065
     Dates: start: 20140109
  2. MELOXICAM. [Concomitant]
     Active Substance: MELOXICAM
     Indication: PAIN
     Route: 065
     Dates: start: 20160103
  3. DIAZEPAM. [Suspect]
     Active Substance: DIAZEPAM
     Dosage: AT NIGHT
     Route: 065
     Dates: start: 20150103
  4. TIZANIDINE. [Concomitant]
     Active Substance: TIZANIDINE
     Route: 065
     Dates: start: 20150112
  5. CITAPRAM [Concomitant]
     Indication: DEPRESSION
     Route: 065
     Dates: start: 20080101
  6. DIAZEPAM. [Suspect]
     Active Substance: DIAZEPAM
     Indication: INSOMNIA
     Route: 065
     Dates: start: 20150101
  7. LISINOPRIL. [Concomitant]
     Active Substance: LISINOPRIL
     Indication: BLOOD PRESSURE MEASUREMENT
     Route: 065
     Dates: start: 20080101

REACTIONS (4)
  - Seizure [Unknown]
  - Fall [Unknown]
  - Myoclonus [Unknown]
  - Treatment noncompliance [Unknown]
